FAERS Safety Report 7721621-4 (Version None)
Quarter: 2011Q3

REPORT INFORMATION
  Report Type: 
  Country: None (occurrence: None)
  Receive Date: 20110825
  Receipt Date: 20110809
  Transmission Date: 20111222
  Serious: Yes (Death, Other)
  Sender: FDA-Public Use
  Company Number: 2011MA011581

PATIENT
  Age: 24 Year
  Sex: Male

DRUGS (5)
  1. O-DESMETHYLTRAMADOL (NO PREF. NAME) [Suspect]
     Indication: ACCIDENTAL OVERDOSE
     Dosage: 1.1 UG/G
  2. THC (NO PREF. NAME) [Suspect]
     Indication: ACCIDENTAL OVERDOSE
     Dosage: 0.0006 UG/G
  3. ALPRAZOLAM [Suspect]
     Dosage: 0.14 UG/G AT AUTOPSY
  4. MITRAGYNINE (NO PREF. NAMDE) [Suspect]
     Indication: ACCIDENTAL OVERDOSE
     Dosage: 0.03 UG/G
  5. AMPHETAMINES [Suspect]
     Indication: ACCIDENTAL OVERDOSE
     Dosage: 0.20 UG/G

REACTIONS (1)
  - TOXICITY TO VARIOUS AGENTS [None]
